FAERS Safety Report 25495627 (Version 1)
Quarter: 2025Q2

REPORT INFORMATION
  Report Type: Spontaneous
  Country: US (occurrence: US)
  Receive Date: 20250630
  Receipt Date: 20250630
  Transmission Date: 20250717
  Serious: No
  Sender: PFIZER
  Company Number: US-PFIZER INC-202500131116

PATIENT

DRUGS (1)
  1. ELREXFIO [Suspect]
     Active Substance: ELRANATAMAB-BCMM
     Dates: end: 202506

REACTIONS (2)
  - Nausea [Unknown]
  - Hypotension [Unknown]
